FAERS Safety Report 4536463-0 (Version None)
Quarter: 2004Q4

REPORT INFORMATION
  Report Type: 
  Country: None (occurrence: None)
  Receive Date: 20041223
  Receipt Date: 20040304
  Transmission Date: 20050328
  Serious: No
  Sender: FDA-Public Use
  Company Number: US-GLAXOSMITHKLINE-A0501171A

PATIENT
  Age: 62 Year
  Sex: Male

DRUGS (3)
  1. FLOVENT [Suspect]
     Indication: ILL-DEFINED DISORDER
     Dosage: 100MCG TWICE PER DAY
     Route: 055
     Dates: start: 20040215
  2. FORADIL [Concomitant]
  3. ALBUTEROL [Concomitant]

REACTIONS (5)
  - GLOSSITIS [None]
  - HEADACHE [None]
  - RASH [None]
  - SENSORY DISTURBANCE [None]
  - VISION BLURRED [None]
